FAERS Safety Report 8190564-7 (Version None)
Quarter: 2012Q1

REPORT INFORMATION
  Report Type: 
  Country: None (occurrence: None)
  Receive Date: 20120307
  Receipt Date: 20120223
  Transmission Date: 20120608
  Serious: Yes (Death, Hospitalization)
  Sender: FDA-Public Use
  Company Number: JP-ROCHE-1035510

PATIENT
  Sex: Male

DRUGS (6)
  1. MUCOSOLVAN [Concomitant]
     Indication: PRODUCTIVE COUGH
     Route: 048
     Dates: start: 20111128, end: 20120117
  2. TOLTERODINE TARTRATE [Concomitant]
     Indication: BENIGN PROSTATIC HYPERPLASIA
     Route: 048
     Dates: start: 20111212, end: 20120117
  3. PEGASYS [Suspect]
     Indication: HEPATITIS C
     Route: 058
     Dates: start: 20111003, end: 20120110
  4. AMITRIPTYLINE HCL [Concomitant]
     Indication: BENIGN PROSTATIC HYPERPLASIA
     Route: 048
     Dates: start: 20090101, end: 20120117
  5. TALION (JAPAN) [Concomitant]
     Indication: ECZEMA
     Route: 048
     Dates: start: 20111227, end: 20120117
  6. FLIVAS [Concomitant]
     Indication: BENIGN PROSTATIC HYPERPLASIA
     Route: 048
     Dates: start: 20090101, end: 20120117

REACTIONS (6)
  - RESTLESSNESS [None]
  - RESPIRATORY FAILURE [None]
  - WHITE BLOOD CELL COUNT INCREASED [None]
  - DISSEMINATED INTRAVASCULAR COAGULATION [None]
  - INTERSTITIAL LUNG DISEASE [None]
  - NEUTROPHIL COUNT INCREASED [None]
